FAERS Safety Report 23331344 (Version 1)
Quarter: 2023Q4

REPORT INFORMATION
  Report Type: Spontaneous
  Country: US (occurrence: None)
  Receive Date: 20231221
  Receipt Date: 20231221
  Transmission Date: 20240110
  Serious: Yes (Other)
  Sender: FDA-Public Use
  Company Number: None

PATIENT
  Age: 44 Year
  Sex: Female
  Weight: 81 kg

DRUGS (3)
  1. SCOPOLAMINE [Suspect]
     Active Substance: SCOPOLAMINE
     Indication: Malaria prophylaxis
     Dosage: OTHER QUANTITY : 5 PATCH(ES);?OTHER FREQUENCY : 1PER3DAYS;?
     Route: 062
     Dates: start: 20231122, end: 20231211
  2. SCOPOLAMINE [Suspect]
     Active Substance: SCOPOLAMINE
     Indication: Nausea
  3. SCOPOLAMINE [Suspect]
     Active Substance: SCOPOLAMINE
     Indication: Diarrhoea

REACTIONS (3)
  - Blindness transient [None]
  - Vision blurred [None]
  - Vision blurred [None]

NARRATIVE: CASE EVENT DATE: 20231211
